FAERS Safety Report 12664934 (Version 1)
Quarter: 2016Q3

REPORT INFORMATION
  Report Type: Spontaneous
  Country: TW (occurrence: TW)
  Receive Date: 20160818
  Receipt Date: 20160818
  Transmission Date: 20161109
  Serious: Yes (Life-Threatening, Other)
  Sender: FDA-Public Use
  Company Number: TW-B.I. PHARMACEUTICALS,INC./RIDGEFIELD-2016-BI-53027BI

PATIENT
  Age: 36 Year
  Sex: Female
  Weight: 72.2 kg

DRUGS (3)
  1. INFLAMMIDE [Suspect]
     Active Substance: BUDESONIDE
     Indication: PRODUCT USED FOR UNKNOWN INDICATION
     Dosage: 2 MG
     Route: 055
  2. ATROVENT [Suspect]
     Active Substance: IPRATROPIUM BROMIDE
     Indication: ASTHMA
     Dosage: NEBULIZER
     Route: 045
  3. MAGNESIUM SULFATE. [Concomitant]
     Active Substance: MAGNESIUM SULFATE
     Indication: PRODUCT USED FOR UNKNOWN INDICATION
     Route: 042

REACTIONS (5)
  - Gastritis [Unknown]
  - Subcutaneous emphysema [Unknown]
  - Ketoacidosis [Recovered/Resolved]
  - Pneumomediastinum [Unknown]
  - Condition aggravated [Unknown]
